FAERS Safety Report 18727739 (Version 1)
Quarter: 2021Q1

REPORT INFORMATION
  Report Type: Other
  Country: None (occurrence: US)
  Receive Date: 20210111
  Receipt Date: 20210111
  Transmission Date: 20210419
  Serious: Yes (Hospitalization)
  Sender: FDA-Public Use
  Company Number: US-NUTRACEUTICAL CORPORATION-2105199

PATIENT
  Sex: Female

DRUGS (1)
  1. NATURALCARE? VERTIFIX [Suspect]
     Active Substance: HOMEOPATHICS
     Route: 048

REACTIONS (2)
  - Hypertension [Recovered/Resolved]
  - Dyspnoea [Recovered/Resolved]

NARRATIVE: CASE EVENT DATE: 20210106
